FAERS Safety Report 23229283 (Version 1)
Quarter: 2023Q4

REPORT INFORMATION
  Report Type: Spontaneous
  Country: VN (occurrence: None)
  Receive Date: 20231127
  Receipt Date: 20231127
  Transmission Date: 20240109
  Serious: Yes (Other)
  Sender: FDA-Public Use
  Company Number: VN-ROCHE-3460128

PATIENT
  Sex: Male

DRUGS (2)
  1. TECENTRIQ [Suspect]
     Active Substance: ATEZOLIZUMAB
     Indication: Hepatocellular carcinoma
     Route: 065
  2. BEVACIZUMAB [Suspect]
     Active Substance: BEVACIZUMAB
     Indication: Hepatocellular carcinoma
     Route: 065

REACTIONS (7)
  - Portal vein thrombosis [Unknown]
  - Portal vein cavernous transformation [Unknown]
  - Hepatic cirrhosis [Unknown]
  - Benign prostatic hyperplasia [Unknown]
  - Paranasal sinus inflammation [Unknown]
  - Fungal infection [Unknown]
  - Pulmonary fibrosis [Unknown]
